FAERS Safety Report 19587165 (Version 1)
Quarter: 2021Q3

REPORT INFORMATION
  Report Type: Spontaneous
  Country: US (occurrence: US)
  Receive Date: 20210720
  Receipt Date: 20210720
  Transmission Date: 20211014
  Serious: Yes (Hospitalization)
  Sender: FDA-Public Use
  Company Number: None

PATIENT
  Age: 55 Year
  Sex: Female
  Weight: 126 kg

DRUGS (10)
  1. METHOTREXATE. [Concomitant]
     Active Substance: METHOTREXATE
  2. MAGNESIUM [Concomitant]
     Active Substance: MAGNESIUM
  3. HUMIRA [Suspect]
     Active Substance: ADALIMUMAB
     Indication: RHEUMATOID ARTHRITIS
     Dosage: ?          QUANTITY:1 INJECTION(S);OTHER FREQUENCY:EVERY 2 WEEKS;?
     Route: 058
     Dates: start: 20210521
  4. ARMOUR THYROID [Concomitant]
     Active Substance: THYROID, PORCINE
  5. TURMERIC [Concomitant]
     Active Substance: HERBALS\TURMERIC
  6. LISINOPRIL AND HYDROCHLOROTHIAZIDE [Concomitant]
     Active Substance: HYDROCHLOROTHIAZIDE\LISINOPRIL
  7. ETODOLAC. [Concomitant]
     Active Substance: ETODOLAC
  8. METHOCARBAMOL. [Concomitant]
     Active Substance: METHOCARBAMOL
  9. FOLIC ACID. [Concomitant]
     Active Substance: FOLIC ACID
  10. SOUMEDROL [Concomitant]

REACTIONS (2)
  - Fatigue [None]
  - Dyspnoea [None]

NARRATIVE: CASE EVENT DATE: 20210523
